FAERS Safety Report 7818037-9 (Version None)
Quarter: 2011Q4

REPORT INFORMATION
  Report Type: 
  Country: None (occurrence: None)
  Receive Date: 20111017
  Receipt Date: 20111006
  Transmission Date: 20120403
  Serious: Yes (Hospitalization, Other)
  Sender: FDA-Public Use
  Company Number: US-CELGENEUS-163-21880-11072100

PATIENT
  Sex: Female
  Weight: 72.64 kg

DRUGS (13)
  1. DECADRON [Concomitant]
     Dosage: .5 MILLIGRAM
     Route: 048
  2. POTASSIUM [Concomitant]
     Dosage: 90 MILLIGRAM
     Route: 048
  3. ALLOPURINOL [Concomitant]
     Dosage: 100 MILLIGRAM
     Route: 065
  4. NEXIUM [Concomitant]
     Dosage: 40 MILLIGRAM
     Route: 065
  5. PANTOPRAZOLE [Concomitant]
     Dosage: 20 MILLIGRAM
     Route: 048
  6. HYDRALAZINE HCL [Concomitant]
     Dosage: 10 MILLIGRAM
     Route: 065
  7. REVLIMID [Suspect]
     Indication: MULTIPLE MYELOMA
     Dosage: 25 MILLIGRAM
     Route: 048
     Dates: start: 20110710, end: 20110715
  8. FLEXERIL [Concomitant]
     Route: 065
  9. TYLENOL-500 [Concomitant]
     Route: 065
  10. MICARDIS [Concomitant]
     Dosage: 80 MILLIGRAM
     Route: 048
  11. DIFLUCAN [Concomitant]
     Dosage: 200 MILLIGRAM
     Route: 065
  12. DIFLUCAN [Concomitant]
     Dosage: 100 MILLIGRAM
     Route: 065
  13. ASPIRIN [Concomitant]
     Dosage: 325 MILLIGRAM
     Route: 048

REACTIONS (2)
  - RENAL FAILURE ACUTE [None]
  - GASTROINTESTINAL HAEMORRHAGE [None]
